FAERS Safety Report 22617270 (Version 3)
Quarter: 2024Q2

REPORT INFORMATION
  Report Type: Report from Study
  Country: US (occurrence: US)
  Receive Date: 20230620
  Receipt Date: 20240430
  Transmission Date: 20240716
  Serious: No
  Sender: FDA-Public Use
  Company Number: US-ACADIA PHARMACEUTICALS INC.-ACA-2023-PIM-000953

PATIENT
  Sex: Female

DRUGS (2)
  1. NUPLAZID [Suspect]
     Active Substance: PIMAVANSERIN TARTRATE
     Indication: Parkinson^s disease
     Dosage: 34 MILLIGRAM, QD
     Route: 048
     Dates: start: 20230208
  2. NUPLAZID [Suspect]
     Active Substance: PIMAVANSERIN TARTRATE
     Indication: Parkinsonism
     Dosage: 34 MILLIGRAM, QD
     Route: 048
     Dates: start: 20230309

REACTIONS (4)
  - Product dose omission in error [Recovered/Resolved]
  - Therapeutic response unexpected [Unknown]
  - Product dose omission issue [Recovered/Resolved]
  - Hallucination [Unknown]
